FAERS Safety Report 5558179-4 (Version None)
Quarter: 2007Q4

REPORT INFORMATION
  Report Type: 
  Country: None (occurrence: None)
  Receive Date: 20071214
  Receipt Date: 20071203
  Transmission Date: 20080405
  Serious: Yes (Other)
  Sender: FDA-Public Use
  Company Number: DE-PFIZER INC-2007089023

PATIENT
  Sex: Female

DRUGS (3)
  1. UNACID INJECTION [Suspect]
     Indication: PNEUMONIA MYCOPLASMAL
     Route: 042
  2. MOXIFLOXACIN HCL [Concomitant]
  3. CLARITHROMYCIN [Concomitant]

REACTIONS (4)
  - ANAPHYLACTIC REACTION [None]
  - DRUG HYPERSENSITIVITY [None]
  - HYPOAESTHESIA ORAL [None]
  - PARAESTHESIA [None]
